FAERS Safety Report 6042633-5 (Version None)
Quarter: 2009Q1

REPORT INFORMATION
  Report Type: 
  Country: None (occurrence: None)
  Receive Date: 20090119
  Receipt Date: 20090110
  Transmission Date: 20090719
  Serious: Yes (Other)
  Sender: FDA-Public Use
  Company Number: US-BAYER-200839131NA

PATIENT
  Age: 70 Year
  Sex: Male

DRUGS (8)
  1. CAMPATH [Suspect]
     Indication: CHRONIC LYMPHOCYTIC LEUKAEMIA
     Dates: start: 20080714, end: 20080714
  2. CAMPATH [Suspect]
     Dates: start: 20080716, end: 20080716
  3. CAMPATH [Suspect]
     Dates: start: 20080718, end: 20080718
  4. CAMPATH [Suspect]
     Dates: start: 20080723, end: 20080723
  5. CAMPATH [Suspect]
     Dates: start: 20080725, end: 20080725
  6. CAMPATH [Suspect]
     Dates: start: 20080721, end: 20080721
  7. IVIG (INTRAVENOUS IMMUNOGRLOBULIN) [Concomitant]
     Dates: start: 20080714
  8. RITUXAN [Concomitant]
     Dates: start: 20080714

REACTIONS (1)
  - DIARRHOEA [None]
